FAERS Safety Report 14742917 (Version 1)
Quarter: 2018Q2

REPORT INFORMATION
  Report Type: Spontaneous
  Country: CN (occurrence: CN)
  Receive Date: 20180410
  Receipt Date: 20180410
  Transmission Date: 20180711
  Serious: Yes (Hospitalization)
  Sender: FDA-Public Use
  Company Number: CN-FRESENIUS KABI-FK201804188

PATIENT
  Age: 23 Year
  Sex: Male

DRUGS (2)
  1. LIPOVENOES MCT 20% [Suspect]
     Active Substance: EGG PHOSPHOLIPIDS\GLYCERIN\MEDIUM-CHAIN TRIGLYCERIDES\SOYBEAN OIL
     Indication: NUTRITIONAL SUPPLEMENTATION
     Route: 041
     Dates: start: 20180224, end: 20180224
  2. NOVAMIN 8.5% [Suspect]
     Active Substance: AMINO ACIDS
     Indication: NUTRITIONAL SUPPLEMENTATION
     Route: 041
     Dates: start: 20180224, end: 20180224

REACTIONS (3)
  - Vomiting [Recovered/Resolved]
  - Temperature intolerance [Recovered/Resolved]
  - Pyrexia [Recovered/Resolved]

NARRATIVE: CASE EVENT DATE: 20180224
